FAERS Safety Report 8307501-4 (Version None)
Quarter: 2012Q2

REPORT INFORMATION
  Report Type: 
  Country: None (occurrence: None)
  Receive Date: 20120424
  Receipt Date: 20120419
  Transmission Date: 20120825
  Serious: Yes (Death, Hospitalization, Other)
  Sender: FDA-Public Use
  Company Number: PHHY2011BR92907

PATIENT
  Age: 89 Year
  Sex: Female

DRUGS (3)
  1. DIOVAN HCT [Suspect]
     Indication: HYPERTENSION
     Dosage: 160/12.5MG; 1 TIME ON MORNING
  2. DIOVAN HCT [Suspect]
     Dosage: 80/12.5MG; 1 TIME ON MORNING
     Dates: start: 20110201
  3. DIOVAN HCT [Suspect]
     Dosage: 0.5 DF (160/25MG), UNK

REACTIONS (6)
  - BLOOD PRESSURE INADEQUATELY CONTROLLED [None]
  - ISCHAEMIA [None]
  - PNEUMONIA [None]
  - DEMENTIA ALZHEIMER'S TYPE [None]
  - BLOOD PRESSURE DECREASED [None]
  - FATIGUE [None]
